FAERS Safety Report 10795476 (Version 1)
Quarter: 2015Q1

REPORT INFORMATION
  Report Type: Spontaneous
  Country: US (occurrence: US)
  Receive Date: 20150215
  Receipt Date: 20150215
  Transmission Date: 20150721
  Serious: Yes (Death, Other)
  Sender: FDA-Public Use
  Company Number: US-ACTAVIS-2015-01802

PATIENT
  Age: 5 Year
  Sex: Female

DRUGS (1)
  1. BUPRENORPHINE HYDROCHLORIDE AND NALOXONE HYDROCHLORIDE DIHYDRATE [Suspect]
     Active Substance: BUPRENORPHINE\NALOXONE
     Indication: ACCIDENTAL EXPOSURE TO PRODUCT BY CHILD
     Dosage: 1 DF, SINGLE( 1 SUBLINGUAL TABLET)
     Route: 048

REACTIONS (5)
  - Pulmonary oedema [Fatal]
  - Unresponsive to stimuli [Not Recovered/Not Resolved]
  - Nausea [Unknown]
  - Somnolence [Not Recovered/Not Resolved]
  - Accidental exposure to product by child [Fatal]
